FAERS Safety Report 23561412 (Version 1)
Quarter: 2024Q1

REPORT INFORMATION
  Report Type: Spontaneous
  Country: CA (occurrence: CA)
  Receive Date: 20240224
  Receipt Date: 20240224
  Transmission Date: 20240410
  Serious: Yes (Other)
  Sender: FDA-Public Use
  Company Number: CA-TEVA-VS-3159864

PATIENT
  Age: 30 Year
  Sex: Female

DRUGS (1)
  1. PROGESTERONE [Suspect]
     Active Substance: PROGESTERONE
     Indication: Hormonal contraception
     Dosage: DOSAGE FORM - NOT SPECIFIED
     Route: 065

REACTIONS (1)
  - Dysmenorrhoea [Recovered/Resolved]
